FAERS Safety Report 15941917 (Version 1)
Quarter: 2019Q1

REPORT INFORMATION
  Report Type: Spontaneous
  Country: US (occurrence: US)
  Receive Date: 20190211
  Receipt Date: 20190211
  Transmission Date: 20190417
  Serious: Yes (Hospitalization)
  Sender: FDA-Public Use
  Company Number: None

PATIENT
  Age: 43 Year
  Sex: Female

DRUGS (1)
  1. ZORTRESS [Suspect]
     Active Substance: EVEROLIMUS
     Indication: KIDNEY TRANSPLANT REJECTION
     Route: 048

REACTIONS (2)
  - Hospitalisation [None]
  - Therapy cessation [None]

NARRATIVE: CASE EVENT DATE: 20190209
